FAERS Safety Report 19818670 (Version 1)
Quarter: 2021Q3

REPORT INFORMATION
  Report Type: Spontaneous
  Country: CA (occurrence: CA)
  Receive Date: 20210912
  Receipt Date: 20210912
  Transmission Date: 20211014
  Serious: Yes (Other)
  Sender: FDA-Public Use
  Company Number: CA-ASTRAZENECA-2021A718938

PATIENT
  Age: 81 Year
  Sex: Male

DRUGS (2)
  1. FORMOTEROL FUMARATE/BUDESONIDE [Suspect]
     Active Substance: BUDESONIDE\FORMOTEROL FUMARATE
     Indication: PRODUCT USED FOR UNKNOWN INDICATION
     Route: 065
  2. MEPOLIZUMAB [Suspect]
     Active Substance: MEPOLIZUMAB
     Indication: ASTHMA
     Dosage: 100.0MG UNKNOWN
     Route: 058

REACTIONS (3)
  - Abdominal discomfort [Unknown]
  - Haemorrhoids [Unknown]
  - Prostate cancer [Unknown]
